FAERS Safety Report 7132812-8 (Version None)
Quarter: 2010Q4

REPORT INFORMATION
  Report Type: 
  Country: None (occurrence: None)
  Receive Date: 20101202
  Receipt Date: 20101109
  Transmission Date: 20110411
  Serious: Yes (Hospitalization)
  Sender: FDA-Public Use
  Company Number: FR-AMGEN-FRASP2010005243

PATIENT

DRUGS (6)
  1. ENBREL [Suspect]
     Indication: ANKYLOSING SPONDYLITIS
     Dosage: 25 MG, 2X/WEEK
     Route: 058
     Dates: start: 20031101, end: 20050228
  2. ENBREL [Suspect]
     Dosage: 25 MG, 2 TIMES PER 1 WK
     Route: 058
     Dates: start: 20050405, end: 20050408
  3. ENBREL [Suspect]
     Dosage: UNK
     Dates: start: 20050408
  4. HUMIRA [Suspect]
     Indication: PRODUCT USED FOR UNKNOWN INDICATION
     Dosage: UNK
     Dates: start: 20050602
  5. INDOCIN [Concomitant]
     Dosage: 1 TABLET 1 TIMES PER 1 DAY
     Route: 048
     Dates: start: 20031101
  6. METHOTREXATE [Concomitant]
     Dosage: 5MG 1 TIMES PER 1 WK
     Route: 048
     Dates: start: 20031101, end: 20050301

REACTIONS (5)
  - ASTHENIA [None]
  - CARBON MONOXIDE DIFFUSING CAPACITY DECREASED [None]
  - DIZZINESS [None]
  - DYSPNOEA [None]
  - HEADACHE [None]
